FAERS Safety Report 21452137 (Version 2)
Quarter: 2022Q4

REPORT INFORMATION
  Report Type: Spontaneous
  Country: US (occurrence: US)
  Receive Date: 20221013
  Receipt Date: 20221029
  Transmission Date: 20230113
  Serious: Yes (Hospitalization)
  Sender: FDA-Public Use
  Company Number: US-TEVA-2022-US-2081658

PATIENT
  Age: 35 Year
  Sex: Male

DRUGS (7)
  1. BUPROPION [Suspect]
     Active Substance: BUPROPION
     Indication: Sleep disorder
     Dosage: 150 MILLIGRAM DAILY;
     Route: 065
  2. CLOZAPINE [Suspect]
     Active Substance: CLOZAPINE
     Indication: Suicidal ideation
     Route: 065
  3. ZOLPIDEM [Suspect]
     Active Substance: ZOLPIDEM TARTRATE
     Indication: Sleep disorder
     Route: 065
  4. KETAMINE [Suspect]
     Active Substance: KETAMINE
     Indication: Depression
     Dosage: DOSE NOT STATED
     Route: 041
  5. KETAMINE [Suspect]
     Active Substance: KETAMINE
     Indication: Post-traumatic stress disorder
     Dosage: KETAMINE USE QUICKLY ESCALATED TO MONTHLY IV INFUSIONS
     Route: 041
  6. KETAMINE [Suspect]
     Active Substance: KETAMINE
     Dosage: 4 DOSAGE FORMS DAILY;
     Route: 048
  7. LORAZEPAM [Concomitant]
     Active Substance: LORAZEPAM
     Indication: Anxiety
     Route: 065

REACTIONS (4)
  - Drug withdrawal syndrome [Recovered/Resolved]
  - Intentional product misuse [Unknown]
  - Dependence [Recovered/Resolved]
  - Drug ineffective [Unknown]
